FAERS Safety Report 25393147 (Version 1)
Quarter: 2025Q2

REPORT INFORMATION
  Report Type: Spontaneous
  Country: US (occurrence: US)
  Receive Date: 20250604
  Receipt Date: 20250604
  Transmission Date: 20250717
  Serious: No
  Sender: ROCHE
  Company Number: US-ROCHE-10000298305

PATIENT
  Sex: Female

DRUGS (10)
  1. XOLAIR PFS [Suspect]
     Active Substance: OMALIZUMAB
     Indication: Urticaria
     Dosage: STRENGTH: 300 MG/2 ML
     Route: 058
  2. XOLAIR PFS [Suspect]
     Active Substance: OMALIZUMAB
  3. ASPIRIN CHE 81 MG [Concomitant]
  4. DIAZEPAM TAB 10 MG [Concomitant]
  5. LEVOTHYROXIN TAB 300 MCG [Concomitant]
  6. LISINOPRIL TAB 40 MG [Concomitant]
  7. METOPROLOL S TB2 200MG [Concomitant]
  8. PANTOPRAZOLE SOL 40 MG [Concomitant]
  9. TRAZODONE HC TAB 300 MG [Concomitant]
  10. ZYRTEC ALLER CAP 10 MG [Concomitant]

REACTIONS (1)
  - Arthralgia [Recovered/Resolved]
